FAERS Safety Report 9310568 (Version 4)
Quarter: 2013Q3

REPORT INFORMATION
  Report Type: Spontaneous
  Country: IT (occurrence: IT)
  Receive Date: 20130527
  Receipt Date: 20130819
  Transmission Date: 20140515
  Serious: Yes (Other)
  Sender: FDA-Public Use
  Company Number: IT-RANBAXY-2013RR-69387

PATIENT
  Age: 49 Year
  Sex: Female

DRUGS (5)
  1. CIPROFLOXACIN [Suspect]
     Indication: CYSTITIS
     Dosage: 250 MG, UNK
     Route: 048
  2. HYDROCHLOROTHIAZIDE/AMILORIDE [Suspect]
     Indication: OEDEMA PERIPHERAL
     Dosage: 5 MG/50 MG
     Route: 065
  3. AMOXICILLIN [Suspect]
     Indication: DRUG INTOLERANCE
     Dosage: UNK
     Route: 048
  4. ERYTHROMYCIN [Suspect]
     Indication: ALLERGY TEST
     Dosage: UNK
     Route: 048
  5. DOXYCYCLINE [Suspect]
     Indication: DRUG INTOLERANCE
     Dosage: UNK
     Route: 048

REACTIONS (1)
  - Anaphylactic reaction [Recovering/Resolving]
